FAERS Safety Report 6828337-7 (Version None)
Quarter: 2010Q3

REPORT INFORMATION
  Report Type: 
  Country: None (occurrence: None)
  Receive Date: 20100709
  Receipt Date: 20070209
  Transmission Date: 20110219
  Serious: No
  Sender: FDA-Public Use
  Company Number: US-PFIZER INC-2007003819

PATIENT
  Sex: Male
  Weight: 80.29 kg

DRUGS (6)
  1. CHANTIX [Interacting]
     Indication: TOBACCO USER
     Dates: start: 20060101
  2. METHYLPREDNISOLONE 16MG TAB [Interacting]
     Indication: NASOPHARYNGITIS
     Dates: start: 20060101
  3. AMOXICILLIN AND CLAVULANATE POTASSIUM [Interacting]
     Indication: NASOPHARYNGITIS
     Dates: start: 20060101
  4. DETROL LA [Suspect]
     Indication: BLADDER DISORDER
     Dates: start: 20070101
  5. ACEON [Concomitant]
     Indication: HYPERTENSION
  6. VALSARTAN [Concomitant]
     Indication: HYPERTENSION

REACTIONS (8)
  - ABNORMAL DREAMS [None]
  - DRUG INTERACTION [None]
  - HEADACHE [None]
  - HYPERPHAGIA [None]
  - NOCTURIA [None]
  - POLLAKIURIA [None]
  - WEIGHT DECREASED [None]
  - WEIGHT INCREASED [None]
